FAERS Safety Report 12237848 (Version 3)
Quarter: 2016Q3

REPORT INFORMATION
  Report Type: Spontaneous
  Country: DE (occurrence: DE)
  Receive Date: 20160405
  Receipt Date: 20160907
  Transmission Date: 20161109
  Serious: Yes (Other)
  Sender: FDA-Public Use
  Company Number: DE-SA-2016SA059897

PATIENT
  Sex: Female

DRUGS (9)
  1. LEMTRADA [Suspect]
     Active Substance: ALEMTUZUMAB
     Indication: RELAPSING-REMITTING MULTIPLE SCLEROSIS
     Route: 041
     Dates: start: 20150630, end: 20150702
  2. FAMPYRA [Concomitant]
     Active Substance: DALFAMPRIDINE
     Indication: FATIGUE
     Dosage: 1-0-1
  3. FAMPYRA [Concomitant]
     Active Substance: DALFAMPRIDINE
     Indication: GAIT DISTURBANCE
     Dosage: 1-0-1
  4. OLANZAPINE. [Concomitant]
     Active Substance: OLANZAPINE
     Dosage: MAXIMAL 5 MG
  5. ACICLOVIR [Concomitant]
     Active Substance: ACYCLOVIR
     Indication: PROPHYLAXIS
     Dates: start: 201506, end: 201507
  6. NUVARING [Concomitant]
     Active Substance: ETHINYL ESTRADIOL\ETONOGESTREL
     Dates: start: 2007
  7. VENLAFAXINE [Concomitant]
     Active Substance: VENLAFAXINE HYDROCHLORIDE
  8. PIPAMPERONE [Concomitant]
     Active Substance: PIPAMPERONE
     Dosage: MAXIMAL 40 MG AS NIGHT MEDICATION
  9. QUETIAPINE. [Concomitant]
     Active Substance: QUETIAPINE
     Dosage: MAXIMAL 50 MG

REACTIONS (8)
  - Memory impairment [Unknown]
  - Uhthoff^s phenomenon [Recovered/Resolved]
  - Suicidal behaviour [Unknown]
  - Chills [Recovered/Resolved]
  - Bipolar I disorder [Unknown]
  - Malaise [Recovered/Resolved]
  - Bipolar disorder [Not Recovered/Not Resolved]
  - Pyrexia [Recovered/Resolved]

NARRATIVE: CASE EVENT DATE: 20150630
